FAERS Safety Report 13600935 (Version 1)
Quarter: 2017Q2

REPORT INFORMATION
  Report Type: Spontaneous
  Country: US (occurrence: US)
  Receive Date: 20170531
  Receipt Date: 20170531
  Transmission Date: 20170830
  Serious: Yes (Hospitalization)
  Sender: FDA-Public Use
  Company Number: None

PATIENT
  Age: 67 Year
  Sex: Male

DRUGS (2)
  1. BACLOFEN. [Suspect]
     Active Substance: BACLOFEN
     Indication: MUSCLE SPASMS
     Route: 048
     Dates: start: 20081203, end: 20170522
  2. MIRTAZAPINE. [Suspect]
     Active Substance: MIRTAZAPINE
     Indication: DEPRESSION
     Dosage: AT BEDTIME
     Route: 048
     Dates: start: 20080523

REACTIONS (11)
  - Extra dose administered [None]
  - Toxicologic test abnormal [None]
  - Somnolence [None]
  - Toxicity to various agents [None]
  - Accidental overdose [None]
  - Metabolic disorder [None]
  - Sedation [None]
  - Multiple drug therapy [None]
  - Leukocytosis [None]
  - Fall [None]
  - Computerised tomogram abnormal [None]

NARRATIVE: CASE EVENT DATE: 20170522
